FAERS Safety Report 6730879-X (Version None)
Quarter: 2010Q2

REPORT INFORMATION
  Report Type: 
  Country: None (occurrence: None)
  Receive Date: 20100514
  Receipt Date: 20100504
  Transmission Date: 20101027
  Serious: Yes (Life-Threatening, Hospitalization)
  Sender: FDA-Public Use
  Company Number: 150-20484-10020668

PATIENT
  Age: 53 Year
  Sex: Female
  Weight: 64 kg

DRUGS (12)
  1. INNOHEP [Suspect]
     Indication: PULMONARY EMBOLISM
     Dosage: 0.55-0.6 ML (20000 , 1 IN 1 D) ,SUBCUTANEOUS
     Route: 058
     Dates: start: 20100120, end: 20100201
  2. HEPARIN [Concomitant]
  3. ENALAPRIL MALEATE [Concomitant]
  4. ZOPLICONE (ZOPICLONE) (7.5 MILLIGRAM, TABLETS) [Concomitant]
  5. PROPAVAN   (PROPIOMAZINE MALEATE (25 MILLIGRAM, TABLETS) [Concomitant]
  6. ACETYLSALICYLIC ACID SRT [Concomitant]
  7. BISOPROLOL FUMARATE [Concomitant]
  8. TRADOLAN      (TRAMADOL HYDROCHLORIDE) [Concomitant]
  9. ACETAMINOPHEN [Concomitant]
  10. OXASCAND (OXAZEPAM) (10 MILLIGRAM, TABLETS) [Concomitant]
  11. TAZOCIN (PIPERACILLIN SODIUM, TAZOBACTAM SODIUM) (INJECTION) [Concomitant]
  12. PRIMPERAN ELIXIR [Concomitant]

REACTIONS (5)
  - CARDIAC FAILURE ACUTE [None]
  - GENERAL PHYSICAL HEALTH DETERIORATION [None]
  - HAEMORRHAGE [None]
  - HEPARIN-INDUCED THROMBOCYTOPENIA [None]
  - INTRACARDIAC THROMBUS [None]
